FAERS Safety Report 20489469 (Version 1)
Quarter: 2022Q1

REPORT INFORMATION
  Report Type: Spontaneous
  Country: CN (occurrence: None)
  Receive Date: 20220218
  Receipt Date: 20220218
  Transmission Date: 20220423
  Serious: Yes (Other)
  Sender: FDA-Public Use
  Company Number: 2022A071008

PATIENT
  Age: 69 Year
  Sex: Male
  Weight: 72 kg

DRUGS (4)
  1. IMFINZI [Suspect]
     Active Substance: DURVALUMAB
     Indication: Small cell lung cancer extensive stage
     Dosage: 1000.0MG EVERY CYCLE
     Route: 042
     Dates: start: 20220104, end: 20220104
  2. ETOPOSIDE [Concomitant]
     Active Substance: ETOPOSIDE
  3. CARBOPLATIN [Concomitant]
     Active Substance: CARBOPLATIN
  4. CIS-PLATIN [Concomitant]

REACTIONS (3)
  - Cerebral infarction [Unknown]
  - Urinary incontinence [Unknown]
  - Anal incontinence [Unknown]

NARRATIVE: CASE EVENT DATE: 20220205
